FAERS Safety Report 7352826-2 (Version None)
Quarter: 2011Q1

REPORT INFORMATION
  Report Type: 
  Country: None (occurrence: None)
  Receive Date: 20110310
  Receipt Date: 20110310
  Transmission Date: 20110831
  Serious: Yes (Other)
  Sender: FDA-Public Use
  Company Number: None

PATIENT
  Age: 44 Year
  Sex: Female
  Weight: 94.8018 kg

DRUGS (2)
  1. ALCOHOL SWABS SENT WITH VENTAVIS [Concomitant]
  2. VENTAVIS [Suspect]
     Indication: PULMONARY ARTERIAL HYPERTENSION
     Dosage: 5 MCG INHALATIONS 6 TIMES PER DAY
     Route: 055
     Dates: start: 20110301

REACTIONS (2)
  - PRODUCT QUALITY ISSUE [None]
  - BACILLUS TEST POSITIVE [None]
